FAERS Safety Report 17037711 (Version 2)
Quarter: 2019Q4

REPORT INFORMATION
  Report Type: Spontaneous
  Country: CA (occurrence: CA)
  Receive Date: 20191115
  Receipt Date: 20191127
  Transmission Date: 20200122
  Serious: Yes (Hospitalization, Other)
  Sender: FDA-Public Use
  Company Number: CA-PFIZER INC-2019494085

PATIENT
  Age: 74 Year
  Sex: Female

DRUGS (15)
  1. AZITHROMYCIN ANHYDROUS. [Suspect]
     Active Substance: AZITHROMYCIN ANHYDROUS
     Dosage: UNK
  2. SYMBICORT [Suspect]
     Active Substance: BUDESONIDE\FORMOTEROL FUMARATE DIHYDRATE
     Dosage: UNK
  3. THYROXINE [Suspect]
     Active Substance: LEVOTHYROXINE
     Dosage: UNK
  4. RABEPRAZOLE [Suspect]
     Active Substance: RABEPRAZOLE
     Dosage: UNK
  5. TIOTROPIUM [Suspect]
     Active Substance: TIOTROPIUM
     Dosage: UNK
  6. HYDROCHLOROTHIAZIDE. [Suspect]
     Active Substance: HYDROCHLOROTHIAZIDE
     Dosage: UNK
  7. SALBUTAMOL [Suspect]
     Active Substance: ALBUTEROL
     Dosage: UNK
  8. VITAMIN D [ERGOCALCIFEROL] [Suspect]
     Active Substance: ERGOCALCIFEROL
     Dosage: UNK
  9. CALCIUM CARBONATE. [Suspect]
     Active Substance: CALCIUM CARBONATE
     Dosage: UNK
  10. METOPROLOL. [Suspect]
     Active Substance: METOPROLOL
     Dosage: UNK
  11. PREDNISONE. [Suspect]
     Active Substance: PREDNISONE
     Dosage: UNK
  12. PANTOPRAZOLE [Suspect]
     Active Substance: PANTOPRAZOLE
     Dosage: UNK
  13. ROFLUMILAST. [Suspect]
     Active Substance: ROFLUMILAST
     Dosage: UNK
  14. POTASSIUM CHLORIDE. [Suspect]
     Active Substance: POTASSIUM CHLORIDE
     Dosage: UNK
  15. SALBUTAMOL SULFATE [Suspect]
     Active Substance: ALBUTEROL SULFATE
     Dosage: UNK

REACTIONS (20)
  - Eosinophilia [Unknown]
  - Hypercapnia [Unknown]
  - Hypertension [Unknown]
  - Pneumonitis [Unknown]
  - Asthma [Unknown]
  - Osteoporosis [Unknown]
  - Hyperthyroidism [Unknown]
  - Gastrooesophageal reflux disease [Unknown]
  - Respiratory tract infection [Unknown]
  - Adenocarcinoma [Unknown]
  - Blood count abnormal [Unknown]
  - Breath sounds abnormal [Unknown]
  - Emphysema [Unknown]
  - Pain in extremity [Unknown]
  - Upper respiratory tract infection [Unknown]
  - Polymyalgia rheumatica [Unknown]
  - Pneumothorax spontaneous [Unknown]
  - Influenza [Unknown]
  - Multiple allergies [Unknown]
  - Productive cough [Unknown]
